FAERS Safety Report 9967640 (Version 1)
Quarter: 2014Q1

REPORT INFORMATION
  Report Type: Report from Study
  Country: US (occurrence: US)
  Receive Date: 20140305
  Receipt Date: 20140305
  Transmission Date: 20141002
  Serious: No
  Sender: FDA-Public Use
  Company Number: US-ABBVIE-13P-163-1138534-00

PATIENT
  Age: 28 Year
  Sex: Female

DRUGS (17)
  1. HUMIRA [Suspect]
     Indication: CROHN^S DISEASE
     Dosage: LOADING DOSE
     Dates: start: 20130812, end: 20130812
  2. HUMIRA [Suspect]
  3. PHENYTOIN [Concomitant]
     Indication: CONVULSION
  4. PANTOPRAZOLE [Concomitant]
     Indication: GASTROOESOPHAGEAL REFLUX DISEASE
     Dosage: 40MG DAILY
  5. GABAPENTIN [Concomitant]
     Indication: CONVULSION
  6. DEPAKOTE [Concomitant]
     Indication: CONVULSION
  7. HYDROCODONE [Concomitant]
     Indication: HEADACHE
  8. HYDROCODONE [Concomitant]
     Indication: BACK PAIN
  9. LIDODERM [Concomitant]
     Indication: BACK PAIN
     Dosage: 1 PATCH APPLIED
  10. TRAMADOL [Concomitant]
     Indication: PAIN
     Dosage: 200MG DAILY
  11. TRAMADOL [Concomitant]
     Indication: INSOMNIA
  12. ARICEPT [Concomitant]
     Indication: PRODUCT USED FOR UNKNOWN INDICATION
     Dosage: 5MG DAILY
  13. MIRTAZAPINE [Concomitant]
     Indication: DEPRESSION
  14. FERROUS SULFATE [Concomitant]
     Indication: PRODUCT USED FOR UNKNOWN INDICATION
     Dosage: 325MG DAILY
  15. OMEGA 3 [Concomitant]
     Indication: PRODUCT USED FOR UNKNOWN INDICATION
  16. FOLIC ACID [Concomitant]
     Indication: PRODUCT USED FOR UNKNOWN INDICATION
  17. VIT E [Concomitant]
     Indication: PRODUCT USED FOR UNKNOWN INDICATION

REACTIONS (2)
  - Drug ineffective [Not Recovered/Not Resolved]
  - Crohn^s disease [Not Recovered/Not Resolved]
